FAERS Safety Report 25204871 (Version 3)
Quarter: 2025Q2

REPORT INFORMATION
  Report Type: Spontaneous
  Country: DE (occurrence: DE)
  Receive Date: 20250416
  Receipt Date: 20250501
  Transmission Date: 20250717
  Serious: Yes (Other)
  Sender: ROCHE
  Company Number: None

PATIENT
  Age: 74 Year
  Sex: Male
  Weight: 64.5 kg

DRUGS (20)
  1. RITUXIMAB [Suspect]
     Active Substance: RITUXIMAB
     Indication: Diffuse large B-cell lymphoma recurrent
     Route: 065
     Dates: start: 20201214
  2. RITUXIMAB [Suspect]
     Active Substance: RITUXIMAB
     Route: 065
     Dates: start: 20210209
  3. RITUXIMAB [Suspect]
     Active Substance: RITUXIMAB
     Route: 065
     Dates: start: 20210111
  4. POLATUZUMAB VEDOTIN [Suspect]
     Active Substance: POLATUZUMAB VEDOTIN
     Indication: Diffuse large B-cell lymphoma recurrent
     Route: 065
  5. POLATUZUMAB VEDOTIN [Suspect]
     Active Substance: POLATUZUMAB VEDOTIN
     Route: 065
     Dates: start: 20210111
  6. POLATUZUMAB VEDOTIN [Suspect]
     Active Substance: POLATUZUMAB VEDOTIN
     Route: 065
     Dates: start: 20210209
  7. ELIQUIS [Suspect]
     Active Substance: APIXABAN
     Indication: Thrombosis prophylaxis
     Route: 065
     Dates: start: 20201207
  8. ELIQUIS [Suspect]
     Active Substance: APIXABAN
     Indication: Gastrointestinal haemorrhage
  9. BENDAMUSTINE [Suspect]
     Active Substance: BENDAMUSTINE
     Indication: Diffuse large B-cell lymphoma recurrent
     Route: 065
  10. KYMRIAH [Suspect]
     Active Substance: TISAGENLECLEUCEL
     Indication: Diffuse large B-cell lymphoma
     Route: 042
     Dates: start: 20210309
  11. FLUDARABINE [Suspect]
     Active Substance: FLUDARABINE PHOSPHATE
     Indication: Diffuse large B-cell lymphoma
     Route: 042
     Dates: start: 20210304, end: 20210306
  12. CYCLOPHOSPHAMIDE [Suspect]
     Active Substance: CYCLOPHOSPHAMIDE
     Indication: Diffuse large B-cell lymphoma
     Route: 042
     Dates: start: 20210304, end: 20210306
  13. BENDAMUSTINE [Suspect]
     Active Substance: BENDAMUSTINE
     Indication: Product used for unknown indication
     Route: 065
  14. LEVOTHYROXINE SODIUM [Concomitant]
     Active Substance: LEVOTHYROXINE SODIUM
  15. AMPHOTERICIN B [Concomitant]
     Active Substance: AMPHOTERICIN B
  16. COTRIMOXAZOLE [Concomitant]
     Active Substance: SULFAMETHOXAZOLE\TRIMETHOPRIM
  17. VALACYCLOVIR HYDROCHLORIDE [Concomitant]
     Active Substance: VALACYCLOVIR HYDROCHLORIDE
  18. PANTOPRAZOLE [Concomitant]
     Active Substance: PANTOPRAZOLE
  19. POTASSIUM CHLORIDE [Concomitant]
     Active Substance: POTASSIUM CHLORIDE
  20. RITUXIMAB [Suspect]
     Active Substance: RITUXIMAB

REACTIONS (34)
  - Anaemia [Unknown]
  - Infection [Unknown]
  - Dehydration [Unknown]
  - Atrial fibrillation [Recovered/Resolved]
  - Bradycardia [Unknown]
  - Immunoglobulins decreased [Unknown]
  - C-reactive protein increased [Unknown]
  - Cytokine release syndrome [Recovered/Resolved]
  - Body temperature increased [Recovered/Resolved]
  - Hypotension [Recovered/Resolved]
  - Escherichia infection [Unknown]
  - Tumour pseudoprogression [Recovered/Resolved]
  - Condition aggravated [Unknown]
  - Swelling face [Recovered/Resolved]
  - Swelling [Unknown]
  - Fungal disease carrier [Unknown]
  - Haemoglobin decreased [Unknown]
  - Haematocrit decreased [Unknown]
  - Blood sodium decreased [Unknown]
  - Glomerular filtration rate decreased [Unknown]
  - Blood uric acid abnormal [Unknown]
  - Blood lactate dehydrogenase abnormal [Unknown]
  - Gamma-glutamyltransferase abnormal [Unknown]
  - Blood immunoglobulin G abnormal [Unknown]
  - Blood immunoglobulin M abnormal [Unknown]
  - Interleukin level increased [Recovered/Resolved]
  - Thrombosis [Unknown]
  - Neurotoxicity [Recovered/Resolved]
  - Neutropenic sepsis [Unknown]
  - Arterial haemorrhage [Unknown]
  - Shock haemorrhagic [Unknown]
  - Delirium [Unknown]
  - Enterococcal infection [Unknown]
  - Cystitis [Unknown]

NARRATIVE: CASE EVENT DATE: 20210310
